FAERS Safety Report 8942549 (Version 1)
Quarter: 2012Q4

REPORT INFORMATION
  Report Type: 
  Country: US (occurrence: US)
  Receive Date: 20121204
  Receipt Date: 20121204
  Transmission Date: 20130627
  Serious: Yes (Hospitalization)
  Sender: FDA-Public Use
  Company Number: US-ELI_LILLY_AND_COMPANY-US201211006745

PATIENT
  Age: 4 Year
  Sex: Male

DRUGS (3)
  1. HUMATROPE [Suspect]
     Indication: FAILURE TO THRIVE
     Dosage: 0.8 mg, qd
     Dates: start: 201002
  2. TYLENOL                                 /SCH/ [Concomitant]
     Indication: PAIN
  3. HYDROCODONE [Concomitant]
     Indication: PAIN

REACTIONS (1)
  - Atrial septal defect repair [Unknown]
